FAERS Safety Report 21809810 (Version 1)
Quarter: 2023Q1

REPORT INFORMATION
  Report Type: Spontaneous
  Country: US (occurrence: US)
  Receive Date: 20230103
  Receipt Date: 20230103
  Transmission Date: 20230418
  Serious: No
  Sender: FDA-Public Use
  Company Number: US-SA-SAC20230102000713

PATIENT
  Age: 40 Year
  Sex: Female
  Weight: 94 kg

DRUGS (21)
  1. DUPIXENT [Suspect]
     Active Substance: DUPILUMAB
     Indication: Dermatitis atopic
     Dosage: 300 MG, QOW
     Route: 058
     Dates: end: 2022
  2. OTEZLA [Concomitant]
     Active Substance: APREMILAST
  3. BUSPIRONE [Concomitant]
     Active Substance: BUSPIRONE HYDROCHLORIDE
  4. CYCLOSPORINE [Concomitant]
     Active Substance: CYCLOSPORINE
  5. DILAUDID [Concomitant]
     Active Substance: HYDROMORPHONE HYDROCHLORIDE
  6. FLUCONAZOLE [Concomitant]
     Active Substance: FLUCONAZOLE
  7. HORIZANT [Concomitant]
     Active Substance: GABAPENTIN ENACARBIL
  8. LAMICTAL [Concomitant]
     Active Substance: LAMOTRIGINE
  9. MACROBID [Concomitant]
     Active Substance: NITROFURANTOIN\NITROFURANTOIN MONOHYDRATE
  10. METHADONE [Concomitant]
     Active Substance: METHADONE HYDROCHLORIDE
  11. STELARA [Concomitant]
     Active Substance: USTEKINUMAB
  12. VALIUM [Concomitant]
     Active Substance: DIAZEPAM
  13. ZYRTEC [Concomitant]
     Active Substance: CETIRIZINE HYDROCHLORIDE
  14. ONDANSETRON [Concomitant]
     Active Substance: ONDANSETRON
  15. TIZANIDINE [Concomitant]
     Active Substance: TIZANIDINE
  16. NEORAL [Concomitant]
     Active Substance: CYCLOSPORINE
  17. NURTEC ODT [Concomitant]
     Active Substance: RIMEGEPANT SULFATE
  18. PROMETHAZINE [Concomitant]
     Active Substance: PROMETHAZINE HYDROCHLORIDE
  19. CEPHALEXIN [Concomitant]
     Active Substance: CEPHALEXIN
  20. METHYLPREDNISOLONE [Concomitant]
     Active Substance: METHYLPREDNISOLONE
  21. CLINDAMYCIN BENZOYL PEROXIDE [Concomitant]

REACTIONS (2)
  - Pain [Not Recovered/Not Resolved]
  - Product dose omission issue [Not Recovered/Not Resolved]

NARRATIVE: CASE EVENT DATE: 20221201
